FAERS Safety Report 4838892-4 (Version None)
Quarter: 2005Q4

REPORT INFORMATION
  Report Type: 
  Country: None (occurrence: None)
  Receive Date: 20051129
  Receipt Date: 20051013
  Transmission Date: 20060501
  Serious: No
  Sender: FDA-Public Use
  Company Number: US-GLAXOSMITHKLINE-A0578156A

PATIENT
  Age: 65 Year
  Sex: Female

DRUGS (4)
  1. LOTRONEX [Suspect]
     Indication: IRRITABLE BOWEL SYNDROME
     Dosage: .5MG TWICE PER DAY
     Route: 048
     Dates: start: 20050825
  2. CALCIUM GLUCONATE [Concomitant]
  3. MULTI-VITAMIN [Concomitant]
  4. TYLENOL (CAPLET) [Concomitant]

REACTIONS (3)
  - CONSTIPATION [None]
  - INSOMNIA [None]
  - PALPITATIONS [None]
